FAERS Safety Report 5928771-3 (Version None)
Quarter: 2008Q4

REPORT INFORMATION
  Report Type: 
  Country: None (occurrence: None)
  Receive Date: 20081021
  Receipt Date: 20081008
  Transmission Date: 20090506
  Serious: Yes (Disabling, Other)
  Sender: FDA-Public Use
  Company Number: TPH-00107

PATIENT
  Age: 37 Year
  Sex: Female

DRUGS (2)
  1. LEVONORGESTREL AND ETHINYL ESTRADIOL [Suspect]
     Indication: ORAL CONTRACEPTION
     Dosage: ORAL
     Route: 048
     Dates: start: 20050101
  2. PULSED STEROID THERAPY (CORTICOSTEROID NOS) [Concomitant]

REACTIONS (6)
  - DRUG INEFFECTIVE [None]
  - HEMIANOPIA [None]
  - OPTIC ATROPHY [None]
  - OPTIC NEURITIS [None]
  - PLATELET COUNT INCREASED [None]
  - SCOTOMA [None]
